FAERS Safety Report 12993797 (Version 1)
Quarter: 2016Q4

REPORT INFORMATION
  Report Type: Spontaneous
  Country: US (occurrence: US)
  Receive Date: 20161201
  Receipt Date: 20161201
  Transmission Date: 20170207
  Serious: Yes (Disabling)
  Sender: FDA-Public Use
  Company Number: None

PATIENT
  Age: 58 Year
  Sex: Female
  Weight: 79.45 kg

DRUGS (11)
  1. LEVOTHYROXINE. [Concomitant]
     Active Substance: LEVOTHYROXINE
  2. MULTIVITAMIN [Concomitant]
     Active Substance: VITAMINS
  3. VITAMIN B12 [Concomitant]
     Active Substance: CYANOCOBALAMIN
  4. LISOSOMAL [Concomitant]
  5. VITAMIN C [Concomitant]
     Active Substance: ASCORBIC ACID
  6. FISH OIL [Concomitant]
     Active Substance: FISH OIL
  7. GADOLINIUM [Suspect]
     Active Substance: GADOLINIUM
  8. CO-ENZYME Q [Concomitant]
  9. PROBIOTICS [Concomitant]
     Active Substance: PROBIOTICS NOS
  10. FOLATE [Concomitant]
     Active Substance: FOLATE SODIUM
  11. FEMMRING [Concomitant]

REACTIONS (8)
  - Dysarthria [None]
  - Speech disorder [None]
  - Cognitive disorder [None]
  - Arthralgia [None]
  - Aphasia [None]
  - Memory impairment [None]
  - Impaired work ability [None]
  - Contrast media reaction [None]

NARRATIVE: CASE EVENT DATE: 20161122
